FAERS Safety Report 5512924-2 (Version None)
Quarter: 2007Q4

REPORT INFORMATION
  Report Type: 
  Country: None (occurrence: None)
  Receive Date: 20071112
  Receipt Date: 20071108
  Transmission Date: 20080405
  Serious: Yes (Hospitalization)
  Sender: FDA-Public Use
  Company Number: D0054910A

PATIENT
  Age: 71 Year
  Sex: Female

DRUGS (5)
  1. ELONTRIL [Suspect]
     Indication: DEPRESSION
     Dosage: 300MG PER DAY
     Route: 048
     Dates: start: 20070331
  2. AMITRIPTYLINE HCL [Concomitant]
     Indication: DEPRESSION
     Dosage: 75MG PER DAY
     Route: 048
     Dates: start: 19990928
  3. TAVOR [Concomitant]
     Indication: DEPRESSION
     Dosage: 1MG PER DAY
     Route: 048
     Dates: start: 19990928
  4. METOPROLOL TARTRATE [Concomitant]
     Indication: HYPERTENSION
     Dosage: 50MG TWICE PER DAY
     Route: 048
  5. SIMVASTATIN [Concomitant]
     Dosage: 20MG PER DAY
     Route: 048

REACTIONS (1)
  - DROP ATTACKS [None]
